FAERS Safety Report 24168315 (Version 1)
Quarter: 2024Q3

REPORT INFORMATION
  Report Type: Spontaneous
  Country: US (occurrence: US)
  Receive Date: 20240802
  Receipt Date: 20240802
  Transmission Date: 20241017
  Serious: Yes (Other)
  Sender: BRISTOL MYERS SQUIBB
  Company Number: US-BRISTOL-MYERS SQUIBB COMPANY-2024-118053

PATIENT
  Age: 66 Year
  Sex: Male
  Weight: 90.72 kg

DRUGS (1)
  1. INREBIC [Suspect]
     Active Substance: FEDRATINIB HYDROCHLORIDE
     Indication: Product used for unknown indication
     Dosage: 200 MG TWICE DAILY
     Route: 048

REACTIONS (3)
  - Malignant neoplasm progression [Unknown]
  - Drug ineffective [Unknown]
  - Off label use [Unknown]
